FAERS Safety Report 17655972 (Version 1)
Quarter: 2020Q2

REPORT INFORMATION
  Report Type: Spontaneous
  Country: DE (occurrence: DE)
  Receive Date: 20200410
  Receipt Date: 20200410
  Transmission Date: 20200713
  Serious: Yes (Hospitalization)
  Sender: FDA-Public Use
  Company Number: DE-TEVA-2020-DE-1221927

PATIENT
  Age: 15 Year
  Sex: Male
  Weight: 93 kg

DRUGS (2)
  1. CETIRIZIN 10 MG/ML [Suspect]
     Active Substance: CETIRIZINE HYDROCHLORIDE
     Indication: URTICARIA
     Dosage: UP TO 5 X 1 TABLET DAILY (PATIENT DOSAGE)
     Route: 048
     Dates: start: 20190826
  2. IBUPROFEN 600 MG [Concomitant]
     Active Substance: IBUPROFEN
     Indication: HEADACHE
     Dosage: IF NECESSARY 1 TABLET
     Route: 048

REACTIONS (2)
  - Tic [Not Recovered/Not Resolved]
  - Overdose [Unknown]

NARRATIVE: CASE EVENT DATE: 20190921
